FAERS Safety Report 7555003-5 (Version None)
Quarter: 2011Q2

REPORT INFORMATION
  Report Type: 
  Country: None (occurrence: None)
  Receive Date: 20110617
  Receipt Date: 20110608
  Transmission Date: 20111010
  Serious: Yes (Hospitalization)
  Sender: FDA-Public Use
  Company Number: FR-VERTEX PHARMACEUTICALS INC.-AE-2011-000299

PATIENT
  Sex: Male

DRUGS (3)
  1. VX-950 [Suspect]
     Indication: HEPATITIS C
  2. RIBAVIRIN [Concomitant]
     Indication: HEPATITIS C
  3. PEGINTERFERON ALFA-2A [Concomitant]
     Indication: HEPATITIS C

REACTIONS (3)
  - ASCITES [None]
  - RASH [None]
  - ANAEMIA [None]
